FAERS Safety Report 4645181-X (Version None)
Quarter: 2005Q2

REPORT INFORMATION
  Report Type: 
  Country: None (occurrence: None)
  Receive Date: 20050331
  Receipt Date: 20041201
  Transmission Date: 20051028
  Serious: No
  Sender: FDA-Public Use
  Company Number: 04P-163-0281964

PATIENT
  Age: 72 Year
  Sex: Female
  Weight: 73.4827 kg

DRUGS (12)
  1. HUMIRA [Suspect]
     Indication: PSORIATIC ARTHROPATHY
     Dosage: 40 MG, 1 IN 2 WK, SUBCUTANEOUS
     Route: 058
     Dates: start: 20040701, end: 20040801
  2. METHOTREXATE SODIUM [Concomitant]
  3. CITALOPRAM HYDROBROMIDE [Concomitant]
  4. LORAZEPAM [Concomitant]
  5. WARFARIN SODIUM [Concomitant]
  6. CELECOXIB [Concomitant]
  7. BENICAR [Concomitant]
  8. ACTENOL [Concomitant]
  9. AMLODIPINE BESYLATE [Concomitant]
  10. PREDNISONE [Concomitant]
  11. MULTI-VITAMINS [Concomitant]
  12. ALENDRONATE SODIUM [Concomitant]

REACTIONS (1)
  - DRUG INEFFECTIVE [None]
